FAERS Safety Report 7660543-4 (Version None)
Quarter: 2011Q3

REPORT INFORMATION
  Report Type: 
  Country: None (occurrence: None)
  Receive Date: 20110805
  Receipt Date: 20110727
  Transmission Date: 20111222
  Serious: Yes (Other)
  Sender: FDA-Public Use
  Company Number: US-ASTRAZENECA-2011SE44757

PATIENT
  Age: 62 Year
  Sex: Female
  Weight: 127 kg

DRUGS (14)
  1. HUMALOG [Concomitant]
     Indication: DIABETES MELLITUS
     Dosage: EVERY FOUR TO SIX HOURS
  2. SYMBICORT [Suspect]
     Dosage: 160/4.5 MCG TWO TIMES A DAY
     Route: 055
  3. CELEBREX [Concomitant]
     Indication: ARTHRITIS
  4. CRESTOR [Concomitant]
     Indication: BLOOD CHOLESTEROL
     Route: 048
  5. LISINOPRIL [Concomitant]
     Indication: BLOOD PRESSURE
     Route: 048
  6. ATENOLOL [Concomitant]
     Indication: BLOOD PRESSURE
     Dosage: 25 MG, TWO TIMES A DAY
     Route: 048
  7. SINGULAIR [Concomitant]
     Indication: MULTIPLE ALLERGIES
  8. ASPIRIN [Concomitant]
     Indication: CARDIAC DISORDER
  9. PLAVEX [Concomitant]
     Indication: ANTICOAGULANT THERAPY
  10. NEXIUM [Concomitant]
     Indication: GASTROOESOPHAGEAL REFLUX DISEASE
     Route: 048
  11. MENTANX [Concomitant]
     Indication: DIABETIC NEUROPATHY
  12. NASACORT [Concomitant]
     Indication: MULTIPLE ALLERGIES
  13. ASPIRIN [Concomitant]
     Indication: ANTICOAGULANT THERAPY
  14. HUMALIN [Concomitant]
     Indication: DIABETES MELLITUS

REACTIONS (1)
  - BLOOD GLUCOSE DECREASED [None]
